FAERS Safety Report 10260840 (Version 1)
Quarter: 2014Q2

REPORT INFORMATION
  Report Type: Spontaneous
  Country: GB (occurrence: GB)
  Receive Date: 20140626
  Receipt Date: 20140626
  Transmission Date: 20141212
  Serious: Yes (Other)
  Sender: FDA-Public Use
  Company Number: GB-BRISTOL-MYERS SQUIBB COMPANY-21054846

PATIENT
  Age: 47 Year
  Sex: Female

DRUGS (8)
  1. ARIPIPRAZOLE [Suspect]
     Indication: HYPOMANIA
     Route: 048
     Dates: start: 20140303, end: 20140422
  2. DOCUSATE [Concomitant]
  3. FERROUS SULFATE [Concomitant]
  4. HYDROXOCOBALAMIN [Concomitant]
  5. LORAZEPAM [Concomitant]
  6. MIRTAZAPINE [Concomitant]
  7. RANITIDINE [Concomitant]
  8. RISPERIDONE [Concomitant]

REACTIONS (5)
  - Cutaneous vasculitis [Recovering/Resolving]
  - Infarction [Recovering/Resolving]
  - Skin lesion [Recovering/Resolving]
  - Skin necrosis [Recovering/Resolving]
  - Off label use [Unknown]
